FAERS Safety Report 12408667 (Version 2)
Quarter: 2016Q2

REPORT INFORMATION
  Report Type: Spontaneous
  Country: UZ (occurrence: UZ)
  Receive Date: 20160526
  Receipt Date: 20160617
  Transmission Date: 20160815
  Serious: Yes (Other)
  Sender: FDA-Public Use
  Company Number: UZ-ELI_LILLY_AND_COMPANY-UZ201605006663

PATIENT
  Age: 42 Year
  Sex: Female

DRUGS (2)
  1. FOLFIRI [Concomitant]
     Active Substance: FLUOROURACIL\IRINOTECAN\LEUCOVORIN
     Indication: COLORECTAL CANCER METASTATIC
     Dosage: UNK, UNKNOWN
     Route: 065
     Dates: start: 20160406
  2. ERBITUX [Suspect]
     Active Substance: CETUXIMAB
     Indication: COLORECTAL CANCER METASTATIC
     Dosage: 900 MG/M2, UNKNOWN
     Route: 065
     Dates: start: 201604

REACTIONS (2)
  - Rash [Unknown]
  - Hepatic enzyme increased [Unknown]

NARRATIVE: CASE EVENT DATE: 201604
